FAERS Safety Report 6822085-5 (Version None)
Quarter: 2010Q3

REPORT INFORMATION
  Report Type: 
  Country: None (occurrence: None)
  Receive Date: 20100708
  Receipt Date: 20100628
  Transmission Date: 20110219
  Serious: Yes (Hospitalization)
  Sender: FDA-Public Use
  Company Number: NO-JNJFOC-20100700866

PATIENT
  Sex: Female

DRUGS (9)
  1. FENTANYL [Suspect]
     Indication: PAIN
     Route: 062
  2. LYRICA [Interacting]
     Indication: PAIN
     Route: 048
  3. FURIX [Concomitant]
     Route: 048
  4. GLUCOSAMINE [Concomitant]
     Route: 065
  5. ONDANSETRON [Concomitant]
     Route: 065
  6. AMLODIPINE [Concomitant]
     Route: 065
  7. PARACET [Concomitant]
     Route: 065
  8. ZOPICLONE [Concomitant]
     Route: 065
  9. LEVOTHYROXINE SODIUM [Concomitant]
     Route: 065

REACTIONS (3)
  - AMNESIA [None]
  - DRUG INTERACTION [None]
  - TRANSIENT ISCHAEMIC ATTACK [None]
